FAERS Safety Report 14838729 (Version 1)
Quarter: 2018Q2

REPORT INFORMATION
  Report Type: Spontaneous
  Country: US (occurrence: US)
  Receive Date: 20180418
  Receipt Date: 20180418
  Transmission Date: 20180711
  Serious: Yes (Hospitalization)
  Sender: FDA-Public Use
  Company Number: None

PATIENT
  Age: 67 Year
  Sex: Male

DRUGS (16)
  1. NORCO [Concomitant]
     Active Substance: ACETAMINOPHEN\HYDROCODONE BITARTRATE
  2. GABAPENTIN. [Concomitant]
     Active Substance: GABAPENTIN
  3. ASPIRIN. [Concomitant]
     Active Substance: ASPIRIN
  4. ELIQUIS [Concomitant]
     Active Substance: APIXABAN
  5. KLOR-CON [Concomitant]
     Active Substance: POTASSIUM CHLORIDE
  6. LIPITOR [Concomitant]
     Active Substance: ATORVASTATIN CALCIUM
  7. ALLOPURINOL. [Concomitant]
     Active Substance: ALLOPURINOL
  8. TRAZODONE [Concomitant]
     Active Substance: TRAZODONE HYDROCHLORIDE
  9. TYVASO [Concomitant]
     Active Substance: TREPROSTINIL
  10. OPSUMIT [Suspect]
     Active Substance: MACITENTAN
     Indication: PULMONARY ARTERIAL HYPERTENSION
     Route: 048
     Dates: start: 201608
  11. AMIODARONA [Concomitant]
     Active Substance: AMIODARONE
  12. FAMOTIDINE. [Concomitant]
     Active Substance: FAMOTIDINE
  13. SILDENAFIL. [Concomitant]
     Active Substance: SILDENAFIL
  14. ALBUTEROL NEB SOLN [Concomitant]
  15. DEMADEX [Concomitant]
     Active Substance: TORSEMIDE
  16. VENTOLIN HFA [Concomitant]
     Active Substance: ALBUTEROL SULFATE

REACTIONS (5)
  - Scab [None]
  - Peripheral swelling [None]
  - Cellulitis [None]
  - Arthralgia [None]
  - Pain in extremity [None]

NARRATIVE: CASE EVENT DATE: 20180412
